FAERS Safety Report 10026680 (Version 1)
Quarter: 2014Q1

REPORT INFORMATION
  Report Type: Report from Study
  Country: CN (occurrence: CN)
  Receive Date: 20140321
  Receipt Date: 20140321
  Transmission Date: 20141002
  Serious: Yes (Hospitalization)
  Sender: FDA-Public Use
  Company Number: CN-ROCHE-1363293

PATIENT
  Age: 63 Year
  Sex: Female

DRUGS (4)
  1. PEGASYS [Suspect]
     Indication: HEPATITIS C
     Route: 058
     Dates: start: 201304
  2. PEGASYS [Suspect]
     Route: 058
  3. RIBAVIRIN [Concomitant]
     Indication: HEPATITIS C
     Route: 048
     Dates: start: 201304
  4. RIBAVIRIN [Concomitant]
     Route: 048

REACTIONS (9)
  - Chest discomfort [Unknown]
  - Arrhythmia [Unknown]
  - Hydrocholecystis [Unknown]
  - Liver disorder [Unknown]
  - Pyrexia [Recovered/Resolved]
  - Alopecia [Recovering/Resolving]
  - Rash [Not Recovered/Not Resolved]
  - Asthenia [Not Recovered/Not Resolved]
  - Pruritus [Unknown]
